FAERS Safety Report 11387840 (Version 1)
Quarter: 2015Q3

REPORT INFORMATION
  Report Type: Spontaneous
  Country: FR (occurrence: FR)
  Receive Date: 20150817
  Receipt Date: 20150817
  Transmission Date: 20151125
  Serious: Yes (Hospitalization)
  Sender: FDA-Public Use
  Company Number: FR-PFIZER INC-2015268483

PATIENT
  Age: 36 Year
  Sex: Male

DRUGS (7)
  1. THERALENE [Concomitant]
     Active Substance: TRIMEPRAZINE
     Dosage: 30 GTT, 1X/DAY
  2. EFFEXOR LP [Suspect]
     Active Substance: VENLAFAXINE HYDROCHLORIDE
     Dosage: 3000 MG, SINGLE
     Route: 048
     Dates: start: 20150708, end: 20150708
  3. RISPERDAL [Concomitant]
     Active Substance: RISPERIDONE
     Dosage: 2 MG, 1X/DAY
  4. DIAZEPAM. [Suspect]
     Active Substance: DIAZEPAM
     Dosage: 5 MG, 3X/DAY
     Route: 048
  5. TERCIAN [Concomitant]
     Active Substance: CYAMEMAZINE
     Dosage: 12.5 MG, 3X/DAY
  6. EFFEXOR LP [Suspect]
     Active Substance: VENLAFAXINE HYDROCHLORIDE
     Dosage: 150 MG, 1X/DAY
     Route: 048
  7. DIAZEPAM. [Suspect]
     Active Substance: DIAZEPAM
     Dosage: 100 MG, SINGLE
     Route: 048
     Dates: start: 20150708, end: 20150708

REACTIONS (4)
  - Coma [Recovered/Resolved]
  - Toxicity to various agents [Recovered/Resolved]
  - Overdose [Recovered/Resolved]
  - Serotonin syndrome [Recovered/Resolved]

NARRATIVE: CASE EVENT DATE: 20150708
